FAERS Safety Report 5486325-X (Version None)
Quarter: 2007Q4

REPORT INFORMATION
  Report Type: 
  Country: None (occurrence: None)
  Receive Date: 20071016
  Receipt Date: 20071001
  Transmission Date: 20080405
  Serious: Yes (Hospitalization)
  Sender: FDA-Public Use
  Company Number: JP-ASTRAZENECA-2007AP05712

PATIENT
  Age: 25175 Day
  Sex: Female

DRUGS (18)
  1. SEROQUEL [Suspect]
     Indication: BEHAVIOURAL AND PSYCHIATRIC SYMPTOMS OF DEMENTIA
     Dosage: DIVIDED INTO 2 DOSES
     Route: 048
     Dates: start: 20070625, end: 20070701
  2. SEROQUEL [Suspect]
     Dosage: DIVIDED INTO 2 DOSES
     Route: 048
     Dates: start: 20070702, end: 20070708
  3. SEROQUEL [Suspect]
     Dosage: DIVIDED INTO 4 DOSES
     Route: 048
     Dates: start: 20070709, end: 20070712
  4. SEROQUEL [Suspect]
     Dosage: DIVIDED INTO 3 DOSES
     Route: 048
     Dates: start: 20070713, end: 20070726
  5. SEROQUEL [Suspect]
     Route: 048
     Dates: start: 20070727, end: 20070826
  6. SEROQUEL [Suspect]
     Route: 048
     Dates: start: 20070827, end: 20070828
  7. SEDIEL [Suspect]
     Indication: DEPRESSION
     Route: 048
     Dates: start: 20070713, end: 20070904
  8. SEDIEL [Suspect]
     Indication: ANXIETY
     Route: 048
     Dates: start: 20070713, end: 20070904
  9. DORAL [Suspect]
     Indication: INSOMNIA
     Route: 048
     Dates: start: 20070625, end: 20070903
  10. DORAL [Suspect]
     Route: 048
     Dates: start: 20070911, end: 20070917
  11. PAXIL [Concomitant]
     Indication: DEPRESSION
     Route: 048
     Dates: start: 20060101, end: 20070701
  12. PAXIL [Concomitant]
     Indication: ANXIETY
     Route: 048
     Dates: start: 20060101, end: 20070701
  13. PAXIL [Concomitant]
     Route: 048
     Dates: start: 20070702, end: 20070703
  14. PAXIL [Concomitant]
     Route: 048
     Dates: start: 20070702, end: 20070703
  15. PAXIL [Concomitant]
     Route: 048
     Dates: start: 20070704, end: 20070705
  16. PAXIL [Concomitant]
     Route: 048
     Dates: start: 20070704, end: 20070705
  17. PAXIL [Concomitant]
     Route: 048
     Dates: start: 20070706, end: 20070708
  18. PAXIL [Concomitant]
     Route: 048
     Dates: start: 20070706, end: 20070708

REACTIONS (1)
  - WHITE BLOOD CELL COUNT DECREASED [None]
